FAERS Safety Report 14735350 (Version 1)
Quarter: 2018Q2

REPORT INFORMATION
  Report Type: Report from Study
  Country: US (occurrence: US)
  Receive Date: 20180409
  Receipt Date: 20180409
  Transmission Date: 20180711
  Serious: No
  Sender: FDA-Public Use
  Company Number: US-RETROPHIN, INC.-2018RTN00006

PATIENT
  Age: 12 Month
  Sex: Male
  Weight: 8.44 kg

DRUGS (5)
  1. CHOLBAM [Suspect]
     Active Substance: CHOLIC ACID
     Indication: INBORN ERROR IN PRIMARY BILE ACID SYNTHESIS
     Dosage: 100 MG, 1X/DAY
     Dates: start: 20171004
  2. CHOLBAM [Suspect]
     Active Substance: CHOLIC ACID
     Dosage: 50 MG, 1X/DAY
     Dates: end: 20180222
  3. CHOLBAM [Suspect]
     Active Substance: CHOLIC ACID
     Dosage: 70 MG, 1X/DAY
     Dates: start: 20180223
  4. TRIVISOL [Concomitant]
     Dosage: 1 ML, 1X/DAY
  5. AQUADEKS [Concomitant]
     Active Substance: MINERALS\VITAMINS
     Dosage: 1 ML, EVERY 48 HOURS

REACTIONS (3)
  - Gastrostomy tube site complication [Unknown]
  - Hepatic enzyme increased [Recovering/Resolving]
  - Croup infectious [Recovering/Resolving]

NARRATIVE: CASE EVENT DATE: 20180212
